FAERS Safety Report 8456704-7 (Version None)
Quarter: 2012Q2

REPORT INFORMATION
  Report Type: 
  Country: None (occurrence: None)
  Receive Date: 20120621
  Receipt Date: 20120611
  Transmission Date: 20120825
  Serious: Yes (Other)
  Sender: FDA-Public Use
  Company Number: PL-BRISTOL-MYERS SQUIBB COMPANY-16677601

PATIENT
  Age: 60 Year
  Sex: Female

DRUGS (3)
  1. CARBOPLATIN [Suspect]
     Indication: FALLOPIAN TUBE CANCER
  2. PACLITAXEL [Suspect]
     Indication: FALLOPIAN TUBE CANCER
  3. DEXAMETHASONE [Suspect]
     Indication: PREMEDICATION

REACTIONS (6)
  - ARTHRALGIA [None]
  - ORTHOSTATIC HYPOTENSION [None]
  - DIZZINESS [None]
  - ABDOMINAL PAIN [None]
  - MYALGIA [None]
  - FLUSHING [None]
